FAERS Safety Report 11695229 (Version 1)
Quarter: 2015Q4

REPORT INFORMATION
  Report Type: Spontaneous
  Country: GB (occurrence: GB)
  Receive Date: 20151103
  Receipt Date: 20151103
  Transmission Date: 20160304
  Serious: Yes (Other)
  Sender: FDA-Public Use
  Company Number: GB-GILEAD-2015-0179136

PATIENT
  Sex: Male

DRUGS (1)
  1. TRUVADA [Suspect]
     Active Substance: EMTRICITABINE\TENOFOVIR DISOPROXIL FUMARATE
     Indication: PROPHYLAXIS AGAINST HIV INFECTION
     Dosage: UNK UNKNOWN, UNK
     Route: 065

REACTIONS (7)
  - Diarrhoea [Unknown]
  - Cartilage injury [Unknown]
  - Neuralgia [Unknown]
  - Prophylaxis against HIV infection [Unknown]
  - Retinal detachment [Unknown]
  - Abdominal discomfort [Unknown]
  - Off label use [Unknown]
